FAERS Safety Report 11076177 (Version 2)
Quarter: 2015Q2

REPORT INFORMATION
  Report Type: Spontaneous
  Country: US (occurrence: US)
  Receive Date: 20150429
  Receipt Date: 20150506
  Transmission Date: 20150821
  Serious: Yes (Other)
  Sender: FDA-Public Use
  Company Number: US-PFIZER INC-2015143329

PATIENT
  Age: 40 Year
  Sex: Male
  Weight: 83.9 kg

DRUGS (3)
  1. CAVERJECT [Suspect]
     Active Substance: ALPROSTADIL
     Indication: ERECTILE DYSFUNCTION
     Dosage: 1/2 CC, SOMETIMES UP TO A FULL CC
     Dates: start: 2014
  2. TRUVADA [Concomitant]
     Active Substance: EMTRICITABINE\TENOFOVIR DISOPROXIL FUMARATE
     Indication: PROPHYLAXIS
     Dosage: 200-300MG TABLET ONCE DAILY
     Route: 048
  3. CAVERJECT [Suspect]
     Active Substance: ALPROSTADIL
     Dosage: 1 1/2 - 2 CC^S OF 40 MCG BOTTLE

REACTIONS (6)
  - Erection increased [Unknown]
  - Drug ineffective [Not Recovered/Not Resolved]
  - Product quality issue [Not Recovered/Not Resolved]
  - Drug prescribing error [Unknown]
  - Intentional product misuse [Unknown]
  - Incorrect product storage [Unknown]
